FAERS Safety Report 7224132-8 (Version None)
Quarter: 2011Q1

REPORT INFORMATION
  Report Type: 
  Country: None (occurrence: None)
  Receive Date: 20110113
  Receipt Date: 20110106
  Transmission Date: 20110831
  Serious: No
  Sender: FDA-Public Use
  Company Number: US-BIOGENIDEC-2011BI000714

PATIENT
  Age: 54 Year
  Sex: Female

DRUGS (2)
  1. AVONEX [Suspect]
     Indication: MULTIPLE SCLEROSIS
     Route: 030
     Dates: start: 20101202
  2. AVONEX [Suspect]
     Route: 030
     Dates: start: 20110101

REACTIONS (3)
  - GAIT DISTURBANCE [None]
  - INFLUENZA LIKE ILLNESS [None]
  - PAIN [None]
